FAERS Safety Report 23133087 (Version 1)
Quarter: 2023Q4

REPORT INFORMATION
  Report Type: Report from Study
  Country: US (occurrence: US)
  Receive Date: 20231101
  Receipt Date: 20231101
  Transmission Date: 20240109
  Serious: Yes (Other)
  Sender: FDA-Public Use
  Company Number: US-ABBVIE-5470427

PATIENT
  Sex: Female

DRUGS (1)
  1. HUMIRA [Suspect]
     Active Substance: ADALIMUMAB
     Indication: Ankylosing spondylitis
     Dosage: FORM STRENGTH: 40 MILLIGRAM?CITRATE FREE
     Route: 058

REACTIONS (8)
  - Spinal fusion acquired [Unknown]
  - Alopecia [Unknown]
  - Weight decreased [Unknown]
  - Myocardial infarction [Unknown]
  - Skin discolouration [Unknown]
  - Sexual abuse [Unknown]
  - Spinal deformity [Unknown]
  - Joint range of motion decreased [Unknown]
